FAERS Safety Report 6870358-2 (Version None)
Quarter: 2010Q3

REPORT INFORMATION
  Report Type: 
  Country: None (occurrence: None)
  Receive Date: 20100723
  Receipt Date: 20100713
  Transmission Date: 20110219
  Serious: No
  Sender: FDA-Public Use
  Company Number: US-BIOGENIDEC-2010BI024432

PATIENT
  Age: 62 Year
  Sex: Female

DRUGS (1)
  1. TYSABRI [Suspect]
     Indication: MULTIPLE SCLEROSIS
     Route: 042
     Dates: start: 20091101

REACTIONS (8)
  - BALANCE DISORDER [None]
  - FATIGUE [None]
  - FUNGAL SKIN INFECTION [None]
  - LYMPHOCYTE COUNT INCREASED [None]
  - OROPHARYNGEAL PAIN [None]
  - OTITIS MEDIA [None]
  - PYREXIA [None]
  - URINARY TRACT INFECTION [None]
